FAERS Safety Report 9305334 (Version 1)
Quarter: 2013Q2

REPORT INFORMATION
  Report Type: Spontaneous
  Country: US (occurrence: None)
  Receive Date: 20130522
  Receipt Date: 20130522
  Transmission Date: 20140414
  Serious: Yes (Hospitalization)
  Sender: FDA-Public Use
  Company Number: None

PATIENT
  Age: 44 Year
  Sex: Female
  Weight: 75.7 kg

DRUGS (2)
  1. QUETIAPINE [Suspect]
     Dosage: H.S.
     Route: 048
     Dates: start: 20121127, end: 20130116
  2. ARIPIPRAZOLE [Suspect]
     Route: 048
     Dates: start: 20120720, end: 20130116

REACTIONS (2)
  - Dystonia [None]
  - Extrapyramidal disorder [None]
